FAERS Safety Report 8462966-2 (Version None)
Quarter: 2012Q2

REPORT INFORMATION
  Report Type: 
  Country: None (occurrence: None)
  Receive Date: 20120625
  Receipt Date: 20120606
  Transmission Date: 20120825
  Serious: Yes (Death)
  Sender: FDA-Public Use
  Company Number: US-GLAXOSMITHKLINE-A0980400A

PATIENT
  Age: 68 Year
  Sex: Female
  Weight: 163.7 kg

DRUGS (5)
  1. PAZOPANIB [Suspect]
     Indication: OVARIAN EPITHELIAL CANCER
     Dosage: 800MG PER DAY
     Route: 048
     Dates: start: 20120423
  2. PACLITAXEL [Suspect]
     Indication: OVARIAN EPITHELIAL CANCER
     Dosage: 80MGM2 CYCLIC
     Route: 042
     Dates: start: 20120423
  3. BACTRIM [Concomitant]
  4. MUCINEX [Concomitant]
  5. AMLODIPINE [Concomitant]
     Dosage: 2.5MG PER DAY
     Route: 048

REACTIONS (1)
  - DEATH [None]
